FAERS Safety Report 5632626-1 (Version None)
Quarter: 2008Q1

REPORT INFORMATION
  Report Type: 
  Country: None (occurrence: None)
  Receive Date: 20080219
  Receipt Date: 20080212
  Transmission Date: 20080703
  Serious: Yes (Hospitalization)
  Sender: FDA-Public Use
  Company Number: CIP07001696

PATIENT
  Age: 83 Year
  Sex: Female

DRUGS (5)
  1. ACTONEL [Suspect]
     Indication: OSTEOPOROSIS
     Dosage: 35MG ONCE A WEEK, ORAL
     Route: 048
     Dates: start: 20020101, end: 20070717
  2. LOTREL /01289101/ (BENAZEPRIL HYDROCHLORIDE, AMLODIPINE) [Concomitant]
  3. CALCIUM (CALCIUM) [Concomitant]
  4. ERGOCALCIFEROL [Concomitant]
  5. MULTIVITAMIN /00831701/ (VITAMINS NOS) [Concomitant]

REACTIONS (3)
  - COLOSTOMY [None]
  - DIVERTICULITIS [None]
  - SYNOVIAL CYST [None]
